FAERS Safety Report 5885413-3 (Version None)
Quarter: 2008Q3

REPORT INFORMATION
  Report Type: 
  Country: None (occurrence: None)
  Receive Date: 20080916
  Receipt Date: 20080915
  Transmission Date: 20090109
  Serious: Yes (Hospitalization, Other)
  Sender: FDA-Public Use
  Company Number: US-GENENTECH-266706

PATIENT
  Sex: Female
  Weight: 67 kg

DRUGS (2)
  1. RAPTIVA [Suspect]
     Indication: PSORIASIS
     Dosage: 0.7 ML, 1/WEEK
     Route: 058
     Dates: start: 20070518, end: 20080501
  2. RAPTIVA [Suspect]
     Dosage: 0.7 ML, 1/WEEK
     Route: 058
     Dates: start: 20080624, end: 20080629

REACTIONS (2)
  - HEADACHE [None]
  - MUSCULOSKELETAL STIFFNESS [None]
